FAERS Safety Report 18344881 (Version 4)
Quarter: 2020Q4

REPORT INFORMATION
  Report Type: Spontaneous
  Country: US (occurrence: US)
  Receive Date: 20201005
  Receipt Date: 20201208
  Transmission Date: 20210114
  Serious: No
  Sender: FDA-Public Use
  Company Number: US-CELGENEUS-USA-20200701818

PATIENT
  Sex: Male
  Weight: 97.61 kg

DRUGS (2)
  1. REVLIMID [Suspect]
     Active Substance: LENALIDOMIDE
     Indication: B-CELL LYMPHOMA
     Dosage: 20 MILLIGRAM
     Route: 048
     Dates: start: 202002
  2. REVLIMID [Suspect]
     Active Substance: LENALIDOMIDE
     Indication: OFF LABEL USE
     Dosage: 20 MILLIGRAM
     Route: 048
     Dates: start: 202003

REACTIONS (9)
  - Gastric disorder [Unknown]
  - Dyspnoea [Not Recovered/Not Resolved]
  - Depression [Unknown]
  - White blood cell count decreased [Unknown]
  - Spleen disorder [Unknown]
  - Sinusitis [Unknown]
  - Nasopharyngitis [Unknown]
  - Constipation [Not Recovered/Not Resolved]
  - Asthenia [Unknown]

NARRATIVE: CASE EVENT DATE: 2020
